FAERS Safety Report 8618785-7 (Version None)
Quarter: 2012Q3

REPORT INFORMATION
  Report Type: 
  Country: None (occurrence: None)
  Receive Date: 20120824
  Receipt Date: 20120817
  Transmission Date: 20120928
  Serious: Yes (Other)
  Sender: FDA-Public Use
  Company Number: GB-JNJFOC-20120504210

PATIENT
  Sex: Female

DRUGS (1)
  1. TOPAMAX [Suspect]
     Indication: ACCIDENTAL EXPOSURE
     Dosage: PATIENT HAD DEFINITELY TAKEN 175MG AND POSSIBLY UP TO 225MG.
     Route: 048

REACTIONS (9)
  - HALLUCINATION [None]
  - INAPPROPRIATE AFFECT [None]
  - AKATHISIA [None]
  - MYDRIASIS [None]
  - SPEECH DISORDER [None]
  - ACCIDENTAL EXPOSURE [None]
  - DYSKINESIA [None]
  - MANIA [None]
  - MALAISE [None]
